FAERS Safety Report 9642091 (Version 1)
Quarter: 2013Q4

REPORT INFORMATION
  Report Type: Spontaneous
  Country: US (occurrence: US)
  Receive Date: 20131023
  Receipt Date: 20131023
  Transmission Date: 20140711
  Serious: No
  Sender: FDA-Public Use
  Company Number: US-TEVA-438738USA

PATIENT
  Age: 75 Year
  Sex: Female
  Weight: 46.31 kg

DRUGS (3)
  1. ACTIQ [Suspect]
     Indication: BREAKTHROUGH PAIN
     Dates: start: 201309, end: 201309
  2. PERCOCET [Concomitant]
     Indication: PAIN
  3. ROXICODONE [Concomitant]
     Indication: PAIN

REACTIONS (2)
  - Nausea [Recovered/Resolved]
  - Adverse event [Not Recovered/Not Resolved]
